FAERS Safety Report 9858562 (Version 1)
Quarter: 2014Q1

REPORT INFORMATION
  Report Type: Spontaneous
  Country: US (occurrence: None)
  Receive Date: 20140129
  Receipt Date: 20140129
  Transmission Date: 20141002
  Serious: Yes (Death)
  Sender: FDA-Public Use
  Company Number: 2014AP000573

PATIENT
  Age: 82 Year
  Sex: Male

DRUGS (1)
  1. DILT-XR [Suspect]
     Route: 048

REACTIONS (1)
  - Death [None]
